FAERS Safety Report 24426126 (Version 1)
Quarter: 2024Q4

REPORT INFORMATION
  Report Type: Other
  Country: US (occurrence: US)
  Receive Date: 20241011
  Receipt Date: 20241011
  Transmission Date: 20250115
  Serious: Yes (Life-Threatening, Hospitalization)
  Sender: ALVOGEN
  Company Number: US-ALVOGEN-2024095627

PATIENT
  Age: 39 Year
  Sex: Male

DRUGS (4)
  1. DOXORUBICIN [Suspect]
     Active Substance: DOXORUBICIN
     Indication: Invasive ductal breast carcinoma
     Dosage: 4 CYCLES OF NEOADJUVANT DOSE-DENSE
  2. DEXAMETHASONE [Suspect]
     Active Substance: DEXAMETHASONE
     Indication: Vomiting
     Dosage: RECEIVED DEXAMETHASONE FOLLOWING EACH CYCLE OF CHEMOTHERAPY
  3. CYCLOPHOSPHAMIDE [Suspect]
     Active Substance: CYCLOPHOSPHAMIDE
     Indication: Invasive ductal breast carcinoma
     Dosage: 4 CYCLES OF NEOADJUVANT DOSE-DENSE
  4. PACLITAXEL [Suspect]
     Active Substance: PACLITAXEL
     Indication: Invasive ductal breast carcinoma
     Dosage: 1 DOSE OF PACLITAXEL AFTER DOXORUBICIN AND CYCLOPHOSPHAMIDE

REACTIONS (2)
  - Pneumocystis jirovecii pneumonia [Unknown]
  - Immunosuppression [Unknown]
